FAERS Safety Report 16012397 (Version 1)
Quarter: 2019Q1

REPORT INFORMATION
  Report Type: Spontaneous
  Country: US (occurrence: US)
  Receive Date: 20190226
  Receipt Date: 20190226
  Transmission Date: 20190418
  Serious: Yes (Disabling, Other)
  Sender: FDA-Public Use
  Company Number: None

PATIENT
  Age: 74 Year
  Sex: Female

DRUGS (1)
  1. PROLIA [Suspect]
     Active Substance: DENOSUMAB
     Indication: OSTEOPOROSIS
     Dates: start: 20181204, end: 20181204

REACTIONS (8)
  - Night sweats [None]
  - Pruritus [None]
  - Localised infection [None]
  - Insomnia [None]
  - Arthralgia [None]
  - Asthenia [None]
  - Pain [None]
  - Dyspnoea [None]

NARRATIVE: CASE EVENT DATE: 20181204
